FAERS Safety Report 15729610 (Version 3)
Quarter: 2020Q2

REPORT INFORMATION
  Report Type: Spontaneous
  Country: IN (occurrence: IN)
  Receive Date: 20181217
  Receipt Date: 20200527
  Transmission Date: 20200713
  Serious: Yes (Other)
  Sender: FDA-Public Use
  Company Number: IN-PFIZER INC-2018514141

PATIENT
  Age: 13 Year
  Sex: Male

DRUGS (1)
  1. DEPO-MEDROL [Suspect]
     Active Substance: METHYLPREDNISOLONE ACETATE
     Indication: RETINAL DETACHMENT
     Dosage: 40 MG/ML WEEKLY, (SUPEROTEMPORAL SUBCONJUNCTIVAL INJECTION OF METHYLPREDNISOLONE ACETATE SUSPENSION)
     Route: 057

REACTIONS (2)
  - Product use issue [Unknown]
  - Conjunctival ulcer [Recovered/Resolved]
